FAERS Safety Report 14403403 (Version 1)
Quarter: 2018Q1

REPORT INFORMATION
  Report Type: Spontaneous
  Country: US (occurrence: US)
  Receive Date: 20180116
  Receipt Date: 20180116
  Transmission Date: 20180509
  Serious: Yes (Hospitalization)
  Sender: FDA-Public Use
  Company Number: None

PATIENT
  Sex: Female

DRUGS (8)
  1. ENBREL [Suspect]
     Active Substance: ETANERCEPT
     Indication: RHEUMATOID ARTHRITIS
     Route: 058
     Dates: start: 20171117
  2. PAROXETINE. [Concomitant]
     Active Substance: PAROXETINE
  3. VALIUM [Concomitant]
     Active Substance: DIAZEPAM
  4. AMBIEN [Concomitant]
     Active Substance: ZOLPIDEM TARTRATE
  5. NEXIUM [Concomitant]
     Active Substance: ESOMEPRAZOLE MAGNESIUM
  6. CALCIUM/C [Concomitant]
  7. METHYLFOLATE [Concomitant]
     Active Substance: LEVOMEFOLATE CALCIUM
  8. MSM CAP [Concomitant]

REACTIONS (1)
  - Surgery [None]
